FAERS Safety Report 6849752-1 (Version None)
Quarter: 2010Q3

REPORT INFORMATION
  Report Type: 
  Country: None (occurrence: None)
  Receive Date: 20100716
  Receipt Date: 20071004
  Transmission Date: 20110219
  Serious: No
  Sender: FDA-Public Use
  Company Number: US-PFIZER INC-2007084207

PATIENT
  Sex: Female
  Weight: 88.6 kg

DRUGS (5)
  1. CHANTIX [Suspect]
     Indication: SMOKING CESSATION THERAPY
     Route: 048
     Dates: start: 20070807
  2. ZOLOFT [Concomitant]
  3. ACETYLSALICYLIC ACID [Concomitant]
  4. MULTI-VITAMINS [Concomitant]
  5. VIVELLE [Concomitant]

REACTIONS (4)
  - DRY EYE [None]
  - EYE PAIN [None]
  - SOMNOLENCE [None]
  - VISION BLURRED [None]
